FAERS Safety Report 12394419 (Version 1)
Quarter: 2016Q2

REPORT INFORMATION
  Report Type: Spontaneous
  Country: US (occurrence: US)
  Receive Date: 20160523
  Receipt Date: 20160523
  Transmission Date: 20160815
  Serious: No
  Sender: FDA-Public Use
  Company Number: US-TARO-2015TAR00774

PATIENT
  Age: 5 Year
  Sex: Male
  Weight: 18.14 kg

DRUGS (3)
  1. CHILDRENS CETIRIZINE HYDROCHLORIDE SUGAR FREE GRAPE [Suspect]
     Active Substance: CETIRIZINE HYDROCHLORIDE
     Indication: ASTHMA
  2. SINGULAIR [Concomitant]
     Active Substance: MONTELUKAST SODIUM
     Dosage: UNK
  3. CHILDRENS CETIRIZINE HYDROCHLORIDE SUGAR FREE GRAPE [Suspect]
     Active Substance: CETIRIZINE HYDROCHLORIDE
     Indication: MULTIPLE ALLERGIES
     Dosage: 5 ML, 1X/DAY
     Route: 048
     Dates: start: 201501, end: 20150813

REACTIONS (2)
  - Diarrhoea [Recovered/Resolved]
  - Product contamination physical [Recovered/Resolved]

NARRATIVE: CASE EVENT DATE: 20150812
